FAERS Safety Report 9228695 (Version 1)
Quarter: 2013Q2

REPORT INFORMATION
  Report Type: Spontaneous
  Country: IN (occurrence: IN)
  Receive Date: 20130412
  Receipt Date: 20130412
  Transmission Date: 20140414
  Serious: Yes (Disabling, Other)
  Sender: FDA-Public Use
  Company Number: IN-009507513-1303IND002842

PATIENT
  Age: 48 Year
  Sex: Male

DRUGS (2)
  1. NOXAFIL [Suspect]
     Indication: ZYGOMYCOSIS
     Dosage: 200 MG, UNK
     Route: 048
  2. LEVOFLOX [Concomitant]

REACTIONS (4)
  - Jaundice [Recovered/Resolved]
  - Hepatic enzyme increased [Recovered/Resolved]
  - Vomiting [Recovered/Resolved]
  - Nausea [Recovered/Resolved]
